FAERS Safety Report 4386811-X (Version None)
Quarter: 2004Q2

REPORT INFORMATION
  Report Type: 
  Country: None (occurrence: None)
  Receive Date: 20040607
  Receipt Date: 20031015
  Transmission Date: 20050107
  Serious: Yes (Other)
  Sender: FDA-Public Use
  Company Number: 349512

PATIENT
  Age: 17 Year
  Sex: Male
  Weight: 72.6 kg

DRUGS (1)
  1. ACCUTANE [Suspect]
     Indication: ACNE CYSTIC
     Dosage: 80 MG DAILY ORAL
     Route: 048
     Dates: start: 20010820, end: 20020214

REACTIONS (1)
  - KERATOCONJUNCTIVITIS SICCA [None]
